FAERS Safety Report 6395374-9 (Version None)
Quarter: 2009Q4

REPORT INFORMATION
  Report Type: 
  Country: None (occurrence: None)
  Receive Date: 20091009
  Receipt Date: 20090930
  Transmission Date: 20100525
  Serious: Yes (Hospitalization)
  Sender: FDA-Public Use
  Company Number: GB-ELI_LILLY_AND_COMPANY-GB200909006894

PATIENT
  Age: 78 Year
  Sex: Male

DRUGS (8)
  1. HUMALOG [Suspect]
     Indication: TYPE 2 DIABETES MELLITUS
     Dosage: DECREASED
     Route: 058
  2. HUMULIN N [Suspect]
     Indication: TYPE 2 DIABETES MELLITUS
  3. HUMULIN R [Suspect]
     Indication: TYPE 2 DIABETES MELLITUS
  4. HUMULIN N [Suspect]
  5. MIXTARD PORK [Concomitant]
     Indication: TYPE 2 DIABETES MELLITUS
  6. MIXTARD 30/70 ^NOVO NORDISK^ [Concomitant]
     Indication: TYPE 2 DIABETES MELLITUS
     Dosage: 48 IU, DAILY (1/D)
  7. LENTE INSULIN [Concomitant]
     Route: 058
  8. ORAL ANTIDIABETICS [Concomitant]
     Indication: TYPE 2 DIABETES MELLITUS

REACTIONS (3)
  - DIABETES MELLITUS INADEQUATE CONTROL [None]
  - INJECTION SITE SWELLING [None]
  - TYPE I HYPERSENSITIVITY [None]
